FAERS Safety Report 7772850-5 (Version None)
Quarter: 2011Q3

REPORT INFORMATION
  Report Type: 
  Country: None (occurrence: None)
  Receive Date: 20110922
  Receipt Date: 20110422
  Transmission Date: 20111222
  Serious: No
  Sender: FDA-Public Use
  Company Number: US-ASTRAZENECA-2011SE23385

PATIENT
  Age: 88 Year
  Sex: Female
  Weight: 72.6 kg

DRUGS (4)
  1. TRICOR [Concomitant]
  2. XANAX [Concomitant]
  3. SEROQUEL XR [Suspect]
     Route: 048
  4. ACID REFLUX MEDICATION [Concomitant]

REACTIONS (2)
  - RHINORRHOEA [None]
  - WEIGHT INCREASED [None]
